FAERS Safety Report 21736463 (Version 2)
Quarter: 2023Q1

REPORT INFORMATION
  Report Type: Report from Study
  Country: US (occurrence: US)
  Receive Date: 20221215
  Receipt Date: 20230331
  Transmission Date: 20230417
  Serious: No
  Sender: FDA-Public Use
  Company Number: US-ABBVIE-4200499

PATIENT
  Sex: Female

DRUGS (2)
  1. HUMIRA [Suspect]
     Active Substance: ADALIMUMAB
     Indication: Rheumatoid arthritis
     Route: 058
  2. HUMIRA [Suspect]
     Active Substance: ADALIMUMAB
     Route: 058
     Dates: start: 20151015

REACTIONS (7)
  - Epistaxis [Unknown]
  - Nasopharyngitis [Unknown]
  - Sinusitis [Unknown]
  - Seasonal allergy [Unknown]
  - Renal impairment [Unknown]
  - Sputum discoloured [Unknown]
  - Dehydration [Unknown]

NARRATIVE: CASE EVENT DATE: 20220101
